FAERS Safety Report 10029182 (Version 1)
Quarter: 2014Q1

REPORT INFORMATION
  Report Type: Spontaneous
  Country: US (occurrence: US)
  Receive Date: 20140321
  Receipt Date: 20140321
  Transmission Date: 20141002
  Serious: Yes (Hospitalization, Other)
  Sender: FDA-Public Use
  Company Number: US-RB-064716-14

PATIENT
  Age: 54 Year
  Sex: Male

DRUGS (7)
  1. SUBOXONE FILM [Suspect]
     Indication: DRUG DEPENDENCE
     Dosage: SUBOXONE FILM; CUTTING; INITIALLY PRESCRIBED 32 MG, DOSE REDUCED TO 28 MG
     Route: 060
     Dates: start: 2012
  2. SUBOXONE TABLET [Suspect]
     Indication: DRUG DEPENDENCE
     Dosage: DOSING DETAILS UNKNOWN
     Route: 060
  3. INSULIN LANTUS [Concomitant]
     Indication: DIABETES MELLITUS
     Dosage: 25 UNITS EVERY MORNING
     Route: 058
  4. INSULIN LANTUS [Concomitant]
     Dosage: 60 UNITS AT BEDTIME
     Route: 058
  5. INSULIN HUMALOG [Concomitant]
     Indication: DIABETES MELLITUS
     Dosage: 25 UNITS AT MEALTIMES
     Route: 058
  6. METFORMIN [Concomitant]
     Indication: DIABETES MELLITUS
     Dosage: DOSING DETAILS UNKNOWN
     Route: 048
  7. METFORMIN [Concomitant]
     Dosage: DOSING DETAILS UNKNOWN
     Route: 048

REACTIONS (11)
  - Drug detoxification [Recovered/Resolved]
  - Malaise [Not Recovered/Not Resolved]
  - Blood glucose increased [Recovered/Resolved]
  - Wrong technique in drug usage process [Not Recovered/Not Resolved]
  - Drug withdrawal syndrome [Not Recovered/Not Resolved]
  - Nausea [Not Recovered/Not Resolved]
  - Pain [Not Recovered/Not Resolved]
  - Tooth infection [Recovered/Resolved]
  - Swelling face [Recovered/Resolved]
  - Toothache [Recovered/Resolved]
  - Pneumonia [Recovered/Resolved]
